FAERS Safety Report 8351004-8 (Version None)
Quarter: 2012Q2

REPORT INFORMATION
  Report Type: 
  Country: None (occurrence: None)
  Receive Date: 20120510
  Receipt Date: 20120503
  Transmission Date: 20120825
  Serious: Yes (Hospitalization)
  Sender: FDA-Public Use
  Company Number: US-TEVA-336635USA

PATIENT
  Sex: Female

DRUGS (1)
  1. CLOZAPINE [Suspect]
     Indication: DEMENTIA
     Route: 048

REACTIONS (4)
  - INCOHERENT [None]
  - RESTLESSNESS [None]
  - TREMOR [None]
  - RESPIRATORY ALKALOSIS [None]
